FAERS Safety Report 6906418-7 (Version None)
Quarter: 2010Q3

REPORT INFORMATION
  Report Type: 
  Country: None (occurrence: None)
  Receive Date: 20100804
  Receipt Date: 20100729
  Transmission Date: 20110219
  Serious: Yes (Hospitalization)
  Sender: FDA-Public Use
  Company Number: B0619416A

PATIENT
  Sex: Male

DRUGS (4)
  1. ABACAVIR SULFATE AND LAMIVUDINE [Suspect]
     Indication: HIV INFECTION
     Dosage: 1TAB PER DAY
     Route: 048
     Dates: start: 20060322, end: 20090610
  2. REYATAZ [Suspect]
     Indication: HIV INFECTION
     Dosage: 2CAP PER DAY
     Route: 048
     Dates: start: 20060322, end: 20090610
  3. INVIRASE [Suspect]
     Indication: HIV INFECTION
     Dosage: 2TAB TWICE PER DAY
     Route: 048
     Dates: start: 20060322, end: 20090610
  4. NORVIR [Concomitant]
     Indication: HIV INFECTION
     Route: 048
     Dates: start: 20060322

REACTIONS (6)
  - BACK PAIN [None]
  - BLOOD CREATINE INCREASED [None]
  - CALCULUS URINARY [None]
  - HAEMATURIA [None]
  - RENAL IMPAIRMENT [None]
  - URETHRAL PAIN [None]
